FAERS Safety Report 4508444-4 (Version None)
Quarter: 2004Q4

REPORT INFORMATION
  Report Type: 
  Country: None (occurrence: None)
  Receive Date: 20041123
  Receipt Date: 20040213
  Transmission Date: 20050328
  Serious: No
  Sender: FDA-Public Use
  Company Number: US-GLAXOSMITHKLINE-A0498179A

PATIENT
  Age: 53 Year
  Sex: Male

DRUGS (3)
  1. WELLBUTRIN [Suspect]
     Indication: DEPRESSION
     Dosage: 150MCG TWICE PER DAY
     Route: 048
  2. TRAZODONE HCL [Concomitant]
  3. LIPITOR [Concomitant]

REACTIONS (2)
  - FATIGUE [None]
  - SEXUAL DYSFUNCTION [None]
